FAERS Safety Report 15558457 (Version 1)
Quarter: 2018Q4

REPORT INFORMATION
  Report Type: Spontaneous
  Country: BR (occurrence: BR)
  Receive Date: 20181028
  Receipt Date: 20181028
  Transmission Date: 20190205
  Serious: Yes (Other)
  Sender: FDA-Public Use
  Company Number: BR-009507513-1810BRA010717

PATIENT
  Age: 68 Year
  Sex: Female
  Weight: 52 kg

DRUGS (1)
  1. LOSARTAN POTASSIUM. [Suspect]
     Active Substance: LOSARTAN POTASSIUM
     Indication: HYPERTENSION
     Dosage: 50 MICROGRAM, QD
     Route: 048

REACTIONS (7)
  - Emphysema [Unknown]
  - Lymphangitis [Unknown]
  - Adenocarcinoma [Unknown]
  - Focal nodular hyperplasia [Unknown]
  - Hepatic cyst [Unknown]
  - Chest discomfort [Unknown]
  - Hemiparesis [Unknown]

NARRATIVE: CASE EVENT DATE: 20180508
